FAERS Safety Report 9513966 (Version 1)
Quarter: 2013Q3

REPORT INFORMATION
  Report Type: Spontaneous
  Country: US (occurrence: US)
  Receive Date: 20130910
  Receipt Date: 20130910
  Transmission Date: 20140515
  Serious: Yes (Congenital Anomaly)
  Sender: FDA-Public Use
  Company Number: US-PFIZER INC-2013260012

PATIENT
  Sex: 0

DRUGS (3)
  1. GEODON [Suspect]
     Indication: BIPOLAR DISORDER
     Dosage: 120 MG DAILY
     Route: 064
     Dates: start: 201204
  2. GEODON [Suspect]
     Dosage: 80 MG DAILY
     Route: 064
  3. ZOLOFT [Suspect]
     Indication: NAUSEA
     Dosage: UNK
     Route: 064

REACTIONS (2)
  - Maternal exposure during pregnancy [Unknown]
  - Talipes [Unknown]
